FAERS Safety Report 23334063 (Version 2)
Quarter: 2024Q1

REPORT INFORMATION
  Report Type: Report from Study
  Country: US (occurrence: US)
  Receive Date: 20231223
  Receipt Date: 20240123
  Transmission Date: 20240409
  Serious: Yes (Other)
  Sender: FDA-Public Use
  Company Number: US-002147023-NVSC2023US270793

PATIENT
  Sex: Male

DRUGS (1)
  1. ENTRESTO [Suspect]
     Active Substance: SACUBITRIL\VALSARTAN
     Indication: Product used for unknown indication
     Dosage: 1 DOSAGE FORM, BID
     Route: 048
     Dates: start: 20231212

REACTIONS (7)
  - Cardiac failure [Unknown]
  - Influenza [Unknown]
  - Vomiting [Unknown]
  - Cough [Unknown]
  - Diarrhoea [Unknown]
  - Pyrexia [Unknown]
  - Product dose omission issue [Unknown]
